FAERS Safety Report 15014417 (Version 1)
Quarter: 2018Q2

REPORT INFORMATION
  Report Type: Spontaneous
  Country: DE (occurrence: DE)
  Receive Date: 20180615
  Receipt Date: 20180615
  Transmission Date: 20180711
  Serious: Yes (Hospitalization)
  Sender: FDA-Public Use
  Company Number: DE-WEST-WARD PHARMACEUTICALS CORP.-DE-H14001-18-04858

PATIENT
  Age: 58 Year
  Sex: Female
  Weight: 88 kg

DRUGS (14)
  1. BEVACIZUMAB. [Suspect]
     Active Substance: BEVACIZUMAB
     Route: 042
     Dates: start: 20160815, end: 20160815
  2. DEXPANTHENOL. [Concomitant]
     Active Substance: DEXPANTHENOL
     Indication: MUCOSAL INFLAMMATION
     Dosage: ()AS NECESSARY
     Route: 048
     Dates: start: 20160208, end: 20160214
  3. LOPERAMID [Concomitant]
     Active Substance: LOPERAMIDE
     Indication: DIARRHOEA
     Route: 048
     Dates: start: 20160208, end: 20160301
  4. LIDOCAINE HYDROCHLORIDE. [Concomitant]
     Active Substance: LIDOCAINE HYDROCHLORIDE
     Indication: MUCOSAL INFLAMMATION
     Route: 048
     Dates: start: 20160208, end: 20160214
  5. CAPECITABINE. [Suspect]
     Active Substance: CAPECITABINE
     Indication: BREAST CANCER
     Route: 048
     Dates: start: 20160704, end: 20160828
  6. CAPECITABINE. [Suspect]
     Active Substance: CAPECITABINE
     Route: 048
     Dates: start: 20160118, end: 20160815
  7. BEVACIZUMAB. [Suspect]
     Active Substance: BEVACIZUMAB
     Indication: BREAST CANCER
     Route: 042
     Dates: start: 20160704, end: 20160704
  8. CAPECITABINE. [Suspect]
     Active Substance: CAPECITABINE
     Route: 048
     Dates: start: 20160118, end: 20160214
  9. CAPECITABINE. [Suspect]
     Active Substance: CAPECITABINE
     Route: 048
     Dates: start: 20160321, end: 20160515
  10. XARELTO [Concomitant]
     Active Substance: RIVAROXABAN
     Indication: PRODUCT USED FOR UNKNOWN INDICATION
     Route: 058
     Dates: start: 20160912
  11. CORTISONE [Concomitant]
     Active Substance: CORTISONE\HYDROCORTISONE
     Indication: RASH
     Route: 058
     Dates: start: 20160208, end: 20160627
  12. BEPANTHENE [Concomitant]
     Active Substance: DEXPANTHENOL
     Indication: EPISTAXIS
     Route: 065
     Dates: start: 20160208, end: 20160214
  13. CLEXANE [Concomitant]
     Active Substance: ENOXAPARIN SODIUM
     Indication: PRODUCT USED FOR UNKNOWN INDICATION
     Route: 058
     Dates: start: 20160902, end: 20160911
  14. BEVACIZUMAB. [Suspect]
     Active Substance: BEVACIZUMAB
     Indication: BREAST CANCER
     Route: 042
     Dates: start: 20160118, end: 20160118

REACTIONS (1)
  - Thrombosis [Recovered/Resolved]

NARRATIVE: CASE EVENT DATE: 20160902
